FAERS Safety Report 18627468 (Version 1)
Quarter: 2020Q4

REPORT INFORMATION
  Report Type: Spontaneous
  Country: US (occurrence: US)
  Receive Date: 20201216
  Receipt Date: 20201216
  Transmission Date: 20210114
  Serious: Yes (Hospitalization)
  Sender: FDA-Public Use
  Company Number: None

PATIENT
  Sex: Female
  Weight: 73.9 kg

DRUGS (2)
  1. CISPLATIN (119875) [Suspect]
     Active Substance: CISPLATIN
  2. DOCETAXEL (TAXPTERE [Concomitant]

REACTIONS (12)
  - Pain [None]
  - Pneumonia [None]
  - Pulmonary congestion [None]
  - Cough [None]
  - Chest discomfort [None]
  - Fatigue [None]
  - Diarrhoea [None]
  - Lung neoplasm malignant [None]
  - Back pain [None]
  - Tachypnoea [None]
  - COVID-19 [None]
  - Acute respiratory failure [None]

NARRATIVE: CASE EVENT DATE: 20201123
